FAERS Safety Report 4538260-9 (Version None)
Quarter: 2004Q4

REPORT INFORMATION
  Report Type: 
  Country: None (occurrence: None)
  Receive Date: 20041223
  Receipt Date: 20041223
  Transmission Date: 20050328
  Serious: No
  Sender: FDA-Public Use
  Company Number: None

PATIENT
  Sex: Male
  Weight: 79.3795 kg

DRUGS (1)
  1. SILDENAFIL   100 MG  PFIZER [Suspect]
     Indication: ERECTILE DYSFUNCTION
     Dosage: 25,50,100 MG ORAL
     Route: 048
     Dates: start: 20040203, end: 20041004

REACTIONS (1)
  - RETINAL DISORDER [None]
